FAERS Safety Report 7483676-4 (Version None)
Quarter: 2011Q2

REPORT INFORMATION
  Report Type: 
  Country: None (occurrence: None)
  Receive Date: 20110513
  Receipt Date: 20110513
  Transmission Date: 20111010
  Serious: Yes (Hospitalization)
  Sender: FDA-Public Use
  Company Number: None

PATIENT
  Sex: Female
  Weight: 117.02 kg

DRUGS (2)
  1. TAXOL [Suspect]
     Dosage: 270 MG
  2. CARBOPLATIN [Suspect]
     Dosage: 900 MG

REACTIONS (4)
  - DEVICE RELATED INFECTION [None]
  - BACTERAEMIA [None]
  - FEBRILE NEUTROPENIA [None]
  - STAPHYLOCOCCAL INFECTION [None]
